FAERS Safety Report 7742401-X (Version None)
Quarter: 2011Q3

REPORT INFORMATION
  Report Type: 
  Country: None (occurrence: None)
  Receive Date: 20110912
  Receipt Date: 20110824
  Transmission Date: 20111222
  Serious: No
  Sender: FDA-Public Use
  Company Number: US-B.I. PHARMACEUTICALS,INC./RIDGEFIELD-2011-BP-20764BP

PATIENT
  Sex: Female

DRUGS (4)
  1. MIRAPEX [Concomitant]
     Indication: PARKINSON'S DISEASE
  2. MICARDIS [Suspect]
     Indication: BLOOD PRESSURE INCREASED
  3. AZILECT [Concomitant]
     Indication: PARKINSON'S DISEASE
  4. XYLAN EYEDROPS [Concomitant]
     Indication: MIGRAINE

REACTIONS (6)
  - BLOOD PRESSURE INCREASED [None]
  - OEDEMA PERIPHERAL [None]
  - POLLAKIURIA [None]
  - HYPOTENSION [None]
  - URINE ODOUR ABNORMAL [None]
  - GLAUCOMA [None]
